FAERS Safety Report 20994082 (Version 1)
Quarter: 2022Q2

REPORT INFORMATION
  Report Type: Spontaneous
  Country: GB (occurrence: GB)
  Receive Date: 20220622
  Receipt Date: 20220622
  Transmission Date: 20220721
  Serious: Yes (Other)
  Sender: FDA-Public Use
  Company Number: None

PATIENT
  Age: 30 Year
  Sex: Male
  Weight: 67 kg

DRUGS (7)
  1. OXYBUTYNIN [Suspect]
     Active Substance: OXYBUTYNIN
     Indication: Product used for unknown indication
     Dosage: 5 MILLIGRAM
     Dates: start: 20220307
  2. CETIRIZINE [Concomitant]
     Active Substance: CETIRIZINE HYDROCHLORIDE
     Dosage: 1 DOSAGE FORM, QID (TAKE ONE TABLET FOUR TIMES DAILY)
     Dates: start: 20200210
  3. FAMOTIDINE [Concomitant]
     Active Substance: FAMOTIDINE
     Indication: Gastric pH decreased
     Dosage: 1 DOSAGE FORM, BID (ONE TABLET TWICE A DAY (TO REDUCE ACID IN STOMACH)
     Dates: start: 20210804
  4. FEXOFENADINE [Concomitant]
     Active Substance: FEXOFENADINE HYDROCHLORIDE
     Dosage: 2 DOSAGE FORM, BID (TAKE TWO TABLETS TWICE DAILY AS PER DERMATOLOGY)
     Dates: start: 20210216
  5. FLUTICASONE PROPIONATE [Concomitant]
     Active Substance: FLUTICASONE PROPIONATE
     Dosage: 1 DOSAGE FORM, BID (INHALE 1 DOSE TWICE DAILY)
     Route: 055
     Dates: start: 20200805
  6. MONTELUKAST [Concomitant]
     Active Substance: MONTELUKAST SODIUM
     Dosage: 1 DOSAGE FORM, QD (TAKE ONE AT NIGHT)
     Dates: start: 20200210
  7. ALBUTEROL [Concomitant]
     Active Substance: ALBUTEROL
     Dosage: 2 DOSAGE FORM (TWO PUFFS INHALED IF NEEDED (AIRWAY - RELIEVER )
     Dates: start: 20200805

REACTIONS (3)
  - Urinary retention [Recovered/Resolved]
  - Lethargy [Recovered/Resolved]
  - Vision blurred [Recovered/Resolved]

NARRATIVE: CASE EVENT DATE: 20220307
